FAERS Safety Report 4319222-3 (Version None)
Quarter: 2004Q1

REPORT INFORMATION
  Report Type: 
  Country: None (occurrence: None)
  Receive Date: 20040316
  Receipt Date: 20040301
  Transmission Date: 20041129
  Serious: Yes (Hospitalization)
  Sender: FDA-Public Use
  Company Number: 04P-028-0251086-00

PATIENT
  Age: 44 Year
  Sex: Male

DRUGS (5)
  1. KALETRA [Suspect]
     Dosage: PER ORAL
     Route: 048
     Dates: start: 20031119
  2. TENOFOVIR [Suspect]
     Dosage: 300 MG, 1 IN 1 D, PER ORAL
     Route: 048
     Dates: start: 20031119
  3. CARBAMAZEPINE [Concomitant]
  4. PHENYTOIN SODIUM [Concomitant]
  5. LAMIVUDINE [Concomitant]

REACTIONS (2)
  - CONVULSION [None]
  - DRUG INTERACTION [None]
